FAERS Safety Report 5159082-4 (Version None)
Quarter: 2006Q4

REPORT INFORMATION
  Report Type: 
  Country: None (occurrence: None)
  Receive Date: 20061128
  Receipt Date: 20051105
  Transmission Date: 20070319
  Serious: Yes (Hospitalization)
  Sender: FDA-Public Use
  Company Number: GB-BOEHRINGER INGELHEIM PHARMACEUTICALS, INC.-2005-BP-21323YA

PATIENT
  Sex: Male
  Weight: 97.6 kg

DRUGS (12)
  1. TAMSULOSIN HCL [Suspect]
     Indication: URINARY RETENTION
     Route: 048
     Dates: start: 20050816
  2. NATEGLINIDE [Suspect]
     Indication: GLUCOSE TOLERANCE IMPAIRED
     Route: 048
     Dates: start: 20020522
  3. PLACEBO [Suspect]
     Indication: GLUCOSE TOLERANCE IMPAIRED
     Route: 048
     Dates: start: 20020522
  4. VALSARTAN [Suspect]
     Indication: CARDIOVASCULAR DISORDER
     Route: 048
     Dates: start: 20030611
  5. VALSARTAN [Suspect]
     Route: 048
  6. PLACEBO [Suspect]
     Indication: CARDIOVASCULAR DISORDER
     Route: 048
     Dates: start: 20020522
  7. ASPIRIN [Concomitant]
  8. ATENOLOL [Concomitant]
  9. SIMVASTATIN [Concomitant]
  10. GTN-S [Concomitant]
  11. ARTHROTEC [Concomitant]
  12. LOSEC [Concomitant]

REACTIONS (6)
  - CULTURE URINE [None]
  - DISEASE PROGRESSION [None]
  - ESCHERICHIA URINARY TRACT INFECTION [None]
  - HAEMATURIA [None]
  - HYPOTENSION [None]
  - URINARY RETENTION [None]
